FAERS Safety Report 4970217-6 (Version None)
Quarter: 2006Q2

REPORT INFORMATION
  Report Type: 
  Country: None (occurrence: None)
  Receive Date: 20060412
  Receipt Date: 20060403
  Transmission Date: 20061013
  Serious: Yes (Other)
  Sender: FDA-Public Use
  Company Number: JP-JNJFOC-20060306328

PATIENT
  Age: 66 Year
  Sex: Female

DRUGS (1)
  1. CRAVIT [Suspect]
     Indication: CYSTITIS
     Route: 048
     Dates: start: 20040701, end: 20040801

REACTIONS (1)
  - LIVER DISORDER [None]
